FAERS Safety Report 7314782-2 (Version None)
Quarter: 2011Q1

REPORT INFORMATION
  Report Type: 
  Country: None (occurrence: None)
  Receive Date: 20110225
  Receipt Date: 20110110
  Transmission Date: 20110831
  Serious: No
  Sender: FDA-Public Use
  Company Number: US-MYLANLABS-2010S1022464

PATIENT
  Age: 17 Year
  Sex: Female

DRUGS (2)
  1. AMNESTEEM [Suspect]
     Indication: ACNE
     Route: 048
     Dates: start: 20100810, end: 20101104
  2. ORAL CONTRACEPTIVE NOS [Concomitant]

REACTIONS (3)
  - DEPRESSION [None]
  - LETHARGY [None]
  - MALAISE [None]
